FAERS Safety Report 11437463 (Version 1)
Quarter: 2015Q3

REPORT INFORMATION
  Report Type: Spontaneous
  Country: US (occurrence: US)
  Receive Date: 20150821
  Receipt Date: 20150821
  Transmission Date: 20151125
  Serious: No
  Sender: FDA-Public Use
  Company Number: US-ELI_LILLY_AND_COMPANY-US200705000157

PATIENT
  Age: 47 Year
  Sex: Female

DRUGS (1)
  1. CYMBALTA [Suspect]
     Active Substance: DULOXETINE HYDROCHLORIDE
     Indication: APPETITE DISORDER
     Dosage: 30 MG, DAILY (1/D)
     Dates: start: 20070419, end: 20070423

REACTIONS (9)
  - Confusional state [Unknown]
  - Nausea [Recovered/Resolved]
  - Disturbance in attention [Unknown]
  - Fatigue [Unknown]
  - Heart rate increased [Recovered/Resolved]
  - Diplopia [Unknown]
  - Decreased appetite [Unknown]
  - Hallucination, visual [Unknown]
  - Dysgeusia [Unknown]

NARRATIVE: CASE EVENT DATE: 2007
